FAERS Safety Report 4546596-0 (Version None)
Quarter: 2005Q1

REPORT INFORMATION
  Report Type: 
  Country: None (occurrence: None)
  Receive Date: 20050103
  Receipt Date: 20041213
  Transmission Date: 20050727
  Serious: Yes (Other)
  Sender: FDA-Public Use
  Company Number: GBS041216061

PATIENT
  Sex: Male

DRUGS (1)
  1. XIGRIS [Suspect]
     Dates: start: 20041122

REACTIONS (2)
  - EYE DISORDER [None]
  - OCULAR VASCULAR DISORDER [None]
